FAERS Safety Report 11497765 (Version 1)
Quarter: 2015Q3

REPORT INFORMATION
  Report Type: Spontaneous
  Country: US (occurrence: US)
  Receive Date: 20150911
  Receipt Date: 20150911
  Transmission Date: 20151125
  Serious: No
  Sender: FDA-Public Use
  Company Number: US-ASTRAZENECA-2015SE85025

PATIENT
  Sex: Female
  Weight: 61.2 kg

DRUGS (1)
  1. BYDUREON [Suspect]
     Active Substance: EXENATIDE
     Indication: TYPE 1 DIABETES MELLITUS
     Route: 058
     Dates: start: 20150601

REACTIONS (5)
  - Injection site nodule [Unknown]
  - Injection site pain [Unknown]
  - Weight decreased [Unknown]
  - Nausea [Unknown]
  - Injection site haemorrhage [Unknown]
